FAERS Safety Report 18109012 (Version 3)
Quarter: 2020Q3

REPORT INFORMATION
  Report Type: Spontaneous
  Country: US (occurrence: US)
  Receive Date: 20200804
  Receipt Date: 20200819
  Transmission Date: 20201103
  Serious: No
  Sender: FDA-Public Use
  Company Number: US-PFIZER INC-2020292815

PATIENT
  Age: 59 Year
  Sex: Female
  Weight: 92.99 kg

DRUGS (1)
  1. IBRANCE [Suspect]
     Active Substance: PALBOCICLIB
     Indication: BREAST CANCER METASTATIC
     Dosage: UNK (STARTED ON IBRANCE BACK IN JUN2016 OR JUL2016, OR JUN2017 OR JUL2017)
     Dates: end: 2020

REACTIONS (1)
  - Dry skin [Unknown]
